FAERS Safety Report 4664206-9 (Version None)
Quarter: 2005Q2

REPORT INFORMATION
  Report Type: 
  Country: None (occurrence: None)
  Receive Date: 20050516
  Receipt Date: 20050516
  Transmission Date: 20051028
  Serious: Yes (Hospitalization)
  Sender: FDA-Public Use
  Company Number: None

PATIENT
  Age: 84 Year
  Sex: Female
  Weight: 86.637 kg

DRUGS (1)
  1. ASPIRIN [Suspect]
     Indication: PROPHYLAXIS
     Dosage: 325 MG DAILY
     Dates: start: 20040901, end: 20050314

REACTIONS (1)
  - GASTROINTESTINAL HAEMORRHAGE [None]
